FAERS Safety Report 6124824-8 (Version None)
Quarter: 2009Q1

REPORT INFORMATION
  Report Type: 
  Country: None (occurrence: None)
  Receive Date: 20090319
  Receipt Date: 20090310
  Transmission Date: 20090719
  Serious: Yes (Hospitalization, Other)
  Sender: FDA-Public Use
  Company Number: US-BAXTER-2009BH003867

PATIENT
  Age: 53 Year
  Sex: Female

DRUGS (19)
  1. VANCOMYCIN HCL [Suspect]
     Indication: SEPSIS
     Route: 042
     Dates: start: 20081222, end: 20081228
  2. VANCOMYCIN HCL [Suspect]
     Indication: LOCALISED INFECTION
     Route: 042
     Dates: start: 20081222, end: 20081228
  3. REBIF [Suspect]
     Indication: MULTIPLE SCLEROSIS
     Route: 058
     Dates: start: 20060206, end: 20081226
  4. SILVADENE [Suspect]
     Indication: LOCALISED INFECTION
     Route: 061
     Dates: start: 20081101
  5. ZOSYN [Suspect]
     Indication: LOCALISED INFECTION
     Route: 042
     Dates: start: 20081222, end: 20081228
  6. CIPROFLOXACIN HCL [Suspect]
     Indication: SEPSIS
     Route: 042
     Dates: start: 20081224, end: 20081228
  7. BONIVA [Suspect]
     Indication: DRUG USE FOR UNKNOWN INDICATION
     Route: 065
  8. PREDNISONE [Concomitant]
     Indication: SYSTEMIC LUPUS ERYTHEMATOSUS
     Route: 048
  9. LABETALOL HCL [Concomitant]
     Indication: HYPERTENSION
     Route: 048
  10. ASMANEX TWISTHALER [Concomitant]
     Indication: ASTHMA
     Route: 055
  11. ALBUTEROL [Concomitant]
     Indication: ASTHMA
     Route: 055
  12. TYLENOL [Concomitant]
     Indication: PREMEDICATION
     Route: 065
  13. ATIVAN [Concomitant]
     Indication: DRUG USE FOR UNKNOWN INDICATION
     Route: 048
  14. ELAVIL [Concomitant]
     Indication: DRUG USE FOR UNKNOWN INDICATION
     Route: 048
  15. FLONASE [Concomitant]
     Indication: DRUG USE FOR UNKNOWN INDICATION
     Route: 065
  16. LISINOPRIL [Concomitant]
     Indication: DRUG USE FOR UNKNOWN INDICATION
     Route: 048
  17. VALTREX [Concomitant]
     Indication: DRUG USE FOR UNKNOWN INDICATION
     Route: 048
  18. VICODIN [Concomitant]
     Indication: DRUG USE FOR UNKNOWN INDICATION
     Route: 048
  19. UNKNOWN ANTIBIOTICS [Concomitant]
     Indication: DRUG USE FOR UNKNOWN INDICATION
     Route: 065
     Dates: start: 20081101

REACTIONS (7)
  - CLOSTRIDIAL INFECTION [None]
  - FOCAL SEGMENTAL GLOMERULOSCLEROSIS [None]
  - HYPERGAMMAGLOBULINAEMIA BENIGN MONOCLONAL [None]
  - RENAL FAILURE ACUTE [None]
  - SEPSIS [None]
  - SYSTEMIC LUPUS ERYTHEMATOSUS [None]
  - TRANSAMINASES INCREASED [None]
